FAERS Safety Report 8076550-6 (Version None)
Quarter: 2011Q4

REPORT INFORMATION
  Report Type: 
  Country: None (occurrence: None)
  Receive Date: 20111221
  Receipt Date: 20101103
  Transmission Date: 20120403
  Serious: Yes (Other)
  Sender: FDA-Public Use
  Company Number: PHHY2010US39055

PATIENT
  Age: 85 Year
  Sex: Female
  Weight: 66.7 kg

DRUGS (2)
  1. BLOOD TRANSFUSION, AUXILIARY PRODUCTS (NO INGREDIENTS/SUBSTANCES) [Concomitant]
  2. EXJADE [Suspect]
     Indication: MYELODYSPLASTIC SYNDROME
     Dosage: 1250 MG,QD, ORAL
     Route: 048

REACTIONS (6)
  - SERUM FERRITIN INCREASED [None]
  - VOMITING [None]
  - NAUSEA [None]
  - HEADACHE [None]
  - DRUG DOSE OMISSION [None]
  - MALAISE [None]
